FAERS Safety Report 12959717 (Version 1)
Quarter: 2016Q4

REPORT INFORMATION
  Report Type: Spontaneous
  Country: US (occurrence: US)
  Receive Date: 20161121
  Receipt Date: 20161121
  Transmission Date: 20170207
  Serious: No
  Sender: FDA-Public Use
  Company Number: US-JNJFOC-20161002609

PATIENT
  Age: 24 Month
  Sex: Male
  Weight: 14.52 kg

DRUGS (1)
  1. CHILDRENS TYLENOL [Suspect]
     Active Substance: ACETAMINOPHEN
     Indication: RHINORRHOEA
     Route: 048
     Dates: start: 20161002, end: 20161003

REACTIONS (6)
  - Wrong technique in product usage process [Unknown]
  - Expired product administered [Unknown]
  - Off label use [Unknown]
  - Product contamination [Unknown]
  - Product quality issue [Unknown]
  - Product use issue [Unknown]
